FAERS Safety Report 18030141 (Version 1)
Quarter: 2020Q3

REPORT INFORMATION
  Report Type: Spontaneous
  Country: DE (occurrence: DE)
  Receive Date: 20200715
  Receipt Date: 20200715
  Transmission Date: 20201103
  Serious: Yes (Other)
  Sender: FDA-Public Use
  Company Number: DE-ANIPHARMA-2020-DE-000151

PATIENT
  Sex: Male

DRUGS (3)
  1. TRENANTONE [Concomitant]
     Active Substance: LEUPROLIDE ACETATE
     Route: 051
     Dates: start: 2018
  2. BICALUTAMIDE. [Suspect]
     Active Substance: BICALUTAMIDE
     Indication: PRODUCT USED FOR UNKNOWN INDICATION
     Route: 048
  3. BRILIQUE [Concomitant]
     Active Substance: TICAGRELOR
     Route: 048

REACTIONS (4)
  - Pain in extremity [Not Recovered/Not Resolved]
  - Proctalgia [Not Recovered/Not Resolved]
  - Haematochezia [Unknown]
  - Haematuria [Not Recovered/Not Resolved]
